FAERS Safety Report 18493917 (Version 2)
Quarter: 2025Q1

REPORT INFORMATION
  Report Type: Spontaneous
  Country: CA (occurrence: CA)
  Receive Date: 20201111
  Receipt Date: 20250314
  Transmission Date: 20250409
  Serious: Yes (Life-Threatening, Hospitalization, Other)
  Sender: AUROBINDO
  Company Number: CA-PFIZER INC-2801075

PATIENT
  Age: 32 Year
  Sex: Female

DRUGS (9)
  1. BUPIVACAINE [Suspect]
     Active Substance: BUPIVACAINE
     Indication: Spinal anaesthesia
     Route: 065
  2. FENTANYL [Suspect]
     Active Substance: FENTANYL
     Indication: Spinal anaesthesia
     Route: 065
  3. MORPHINE [Suspect]
     Active Substance: MORPHINE
     Indication: Spinal anaesthesia
     Route: 065
  4. PHENYLEPHRINE [Suspect]
     Active Substance: PHENYLEPHRINE
     Indication: Product used for unknown indication
     Route: 065
  5. EPHEDRINE [Suspect]
     Active Substance: EPHEDRINE
     Indication: Product used for unknown indication
     Route: 042
  6. ATROPINE [Suspect]
     Active Substance: ATROPINE
     Indication: Product used for unknown indication
     Route: 065
  7. ACETAMINOPHEN [Suspect]
     Active Substance: ACETAMINOPHEN
     Indication: Product used for unknown indication
     Route: 065
  8. NAPROXEN [Suspect]
     Active Substance: NAPROXEN
     Indication: Product used for unknown indication
     Route: 065
  9. OXYCODONE [Suspect]
     Active Substance: OXYCODONE
     Indication: Product used for unknown indication
     Route: 065

REACTIONS (9)
  - Bradycardia [Recovered/Resolved]
  - Hypotension [Recovered/Resolved]
  - Paralysis [Recovered/Resolved]
  - Neuralgia [Not Recovered/Not Resolved]
  - Rhythm idioventricular [Recovered/Resolved]
  - Anterior spinal artery syndrome [Recovered/Resolved with Sequelae]
  - Urinary retention [Recovered/Resolved]
  - Spinal cord injury [Recovered/Resolved with Sequelae]
  - Maternal exposure during pregnancy [Recovered/Resolved]
